FAERS Safety Report 9090706 (Version 3)
Quarter: 2013Q2

REPORT INFORMATION
  Report Type: Report from Study
  Country: US (occurrence: US)
  Receive Date: 20130201
  Receipt Date: 20130401
  Transmission Date: 20140414
  Serious: Yes (Other)
  Sender: FDA-Public Use
  Company Number: US-ABBOTT-13P-163-1040503-00

PATIENT
  Age: 66 Year
  Sex: Male
  Weight: 78.09 kg

DRUGS (18)
  1. HUMIRA [Suspect]
     Indication: RHEUMATOID ARTHRITIS
     Dates: start: 2009, end: 201109
  2. HUMIRA [Suspect]
     Dates: start: 201109, end: 20120530
  3. HUMIRA [Suspect]
     Dates: start: 20120530
  4. HUMIRA [Suspect]
  5. HUMIRA [Suspect]
  6. HUMIRA [Suspect]
  7. ALEVE [Concomitant]
     Indication: ARTHRALGIA
  8. ALEVE [Concomitant]
     Dosage: 220 MG 2 TABLETS
  9. ASPIRIN [Concomitant]
     Indication: PROPHYLAXIS
     Dosage: DELAYED RELEASE
  10. ASPIRIN [Concomitant]
     Indication: KNEE OPERATION
  11. MEDROL DOSE PACK [Concomitant]
     Indication: PRODUCT USED FOR UNKNOWN INDICATION
  12. NIACIN [Concomitant]
     Dosage: 500 MG DAILY, AS DIRECTED
  13. HYDROCODONE-ACETAMINOPHEN [Concomitant]
     Indication: PRODUCT USED FOR UNKNOWN INDICATION
     Dosage: 7.5-750MG TABLET, 0.5 TO 1 TABLET EVERY SIX TO NINE HOURS
  14. TURMERIC CURCUMIN [Concomitant]
     Indication: PRODUCT USED FOR UNKNOWN INDICATION
     Dosage: 400 MG 1 CAPSULE DAILY
  15. CELEBREX [Concomitant]
     Indication: PRODUCT USED FOR UNKNOWN INDICATION
     Dosage: 200 MG 1 CAPUSLE
  16. CALCIUM + D [Concomitant]
     Indication: PRODUCT USED FOR UNKNOWN INDICATION
     Dosage: 1200-250 MG-UNIT 1 TABLET
  17. VITAMIN C [Concomitant]
     Indication: PRODUCT USED FOR UNKNOWN INDICATION
     Dosage: 500 MG/5ML LIQUID DAILY, AS DIRECTED
  18. CENTRUM SILVER [Concomitant]
     Indication: PRODUCT USED FOR UNKNOWN INDICATION
     Dosage: AS DIRECTED

REACTIONS (6)
  - Osteoarthritis [Not Recovered/Not Resolved]
  - Rheumatoid arthritis [Recovered/Resolved]
  - Drug ineffective [Unknown]
  - Rheumatoid arthritis [Unknown]
  - Inappropriate schedule of drug administration [Recovered/Resolved]
  - Drug effect decreased [Unknown]
